FAERS Safety Report 8320692-4 (Version None)
Quarter: 2012Q2

REPORT INFORMATION
  Report Type: 
  Country: None (occurrence: None)
  Receive Date: 20120430
  Receipt Date: 20120424
  Transmission Date: 20120825
  Serious: Yes (Other)
  Sender: FDA-Public Use
  Company Number: US-AMGEN-USASP2011055124

PATIENT
  Age: 50 Year
  Sex: Female
  Weight: 102.72 kg

DRUGS (7)
  1. HYDROCODONE BITARTRATE AND ACETAMINOPHEN [Concomitant]
     Dosage: UNK UNK, PRN
     Route: 048
     Dates: start: 20050510
  2. PREDNISONE [Concomitant]
     Dosage: 20 MG, QD
     Route: 048
     Dates: start: 20120305
  3. BENADRYL [Concomitant]
     Dosage: UNK UNK, PRN
     Route: 048
     Dates: start: 20111116
  4. METFORMIN HCL [Concomitant]
     Dosage: 500 MG, QD
     Route: 048
     Dates: start: 20120410
  5. ENBREL [Suspect]
     Indication: RHEUMATOID ARTHRITIS
     Dosage: 50 MG, QWK
     Route: 058
     Dates: start: 20060216, end: 20120227
  6. ENBREL [Suspect]
     Dosage: 50 MG, QWK
     Dates: start: 20080101
  7. LISINOPRIL [Concomitant]
     Dosage: 10 MG, QD
     Route: 048
     Dates: start: 20090817

REACTIONS (9)
  - DIABETES MELLITUS [None]
  - SEASONAL ALLERGY [None]
  - ANAL ABSCESS [None]
  - ARTHRITIS [None]
  - SINUSITIS [None]
  - DEPRESSION [None]
  - BLOOD COUNT ABNORMAL [None]
  - PROCTALGIA [None]
  - INJECTION SITE PAIN [None]
